FAERS Safety Report 7943049-4 (Version None)
Quarter: 2011Q4

REPORT INFORMATION
  Report Type: 
  Country: None (occurrence: None)
  Receive Date: 20111128
  Receipt Date: 20111118
  Transmission Date: 20120403
  Serious: Yes (Hospitalization)
  Sender: FDA-Public Use
  Company Number: US-SANOFI-AVENTIS-2011SA076678

PATIENT
  Age: 50 Year
  Sex: Female

DRUGS (4)
  1. LANTUS [Suspect]
     Dosage: STARTED WITH 10 UNITS AND TITRATED UP DOSE:50 UNIT(S)
     Route: 051
     Dates: start: 20110927
  2. SOLOSTAR [Suspect]
     Dosage: STARTED WITH 10 UNITS AND TITRATED UP DOSE:50 UNIT(S)
     Route: 051
     Dates: start: 20110927
  3. METFORMIN HCL [Concomitant]
  4. ALL OTHER THERAPEUTIC PRODUCTS [Concomitant]

REACTIONS (2)
  - BLOOD GLUCOSE INCREASED [None]
  - CRYPTOSPORIDIOSIS INFECTION [None]
